FAERS Safety Report 8999852 (Version 2)
Quarter: 2013Q1

REPORT INFORMATION
  Report Type: Spontaneous
  Country: IE (occurrence: IE)
  Receive Date: 20130102
  Receipt Date: 20130110
  Transmission Date: 20140127
  Serious: Yes (Hospitalization)
  Sender: FDA-Public Use
  Company Number: IE-SANOFI-AVENTIS-2012SA093407

PATIENT
  Age: 40 Year
  Sex: Female
  Weight: 67.3 kg

DRUGS (4)
  1. DOCETAXEL [Suspect]
     Indication: BREAST CANCER
     Route: 042
     Dates: start: 20121116
  2. TRASTUZUMAB [Concomitant]
     Indication: BREAST CANCER
     Route: 042
     Dates: start: 20121116
  3. BLINDED THERAPY [Concomitant]
     Indication: BREAST CANCER
     Dosage: FORM-DRIP
     Route: 042
     Dates: start: 20121116
  4. CARBOPLATIN [Concomitant]
     Indication: BREAST CANCER
     Dosage: DOSE-6 AUC
     Route: 041
     Dates: start: 20121116

REACTIONS (1)
  - Caecitis [Recovered/Resolved]
